FAERS Safety Report 8154109-X (Version None)
Quarter: 2012Q1

REPORT INFORMATION
  Report Type: 
  Country: None (occurrence: None)
  Receive Date: 20120221
  Receipt Date: 20120215
  Transmission Date: 20120608
  Serious: Yes (Hospitalization, Disabling)
  Sender: FDA-Public Use
  Company Number: US-MERCK-1008USA03193

PATIENT
  Age: 53 Year
  Sex: Female

DRUGS (6)
  1. FOSAMAX [Suspect]
     Indication: OSTEOPENIA
     Route: 048
     Dates: start: 20010101, end: 20080801
  2. FOSAMAX PLUS D [Suspect]
     Indication: OSTEOPENIA
     Route: 048
     Dates: start: 20080320, end: 20080901
  3. MEDROL [Concomitant]
     Indication: POLYARTHRITIS
     Route: 065
     Dates: start: 19780101, end: 20010101
  4. SYNTHROID [Concomitant]
     Indication: HYPOTHYROIDISM
     Route: 065
     Dates: start: 19690301
  5. FOSAMAX [Suspect]
     Indication: OSTEOPOROSIS
     Route: 048
     Dates: start: 20010101, end: 20080801
  6. MEDROL [Concomitant]
     Route: 065
     Dates: start: 20010101

REACTIONS (44)
  - MUSCLE STRAIN [None]
  - SCIATICA [None]
  - ARTHROPATHY [None]
  - DIARRHOEA [None]
  - LUMBAR RADICULOPATHY [None]
  - JOINT DISLOCATION [None]
  - PELVIC PAIN [None]
  - SPONDYLOLISTHESIS [None]
  - LUMBAR SPINAL STENOSIS [None]
  - INFLUENZA [None]
  - NECK PAIN [None]
  - TEMPOROMANDIBULAR JOINT SYNDROME [None]
  - PAIN IN EXTREMITY [None]
  - ADVERSE REACTION [None]
  - CYST [None]
  - STRESS FRACTURE [None]
  - DYSTHYMIC DISORDER [None]
  - HYPOAESTHESIA [None]
  - MENOPAUSAL SYMPTOMS [None]
  - FRACTURE DELAYED UNION [None]
  - PARAESTHESIA [None]
  - EPICONDYLITIS [None]
  - FRACTURE NONUNION [None]
  - SYNOVITIS [None]
  - NEUROPATHY PERIPHERAL [None]
  - BRUXISM [None]
  - TONGUE ULCERATION [None]
  - SPINAL OSTEOARTHRITIS [None]
  - FEMUR FRACTURE [None]
  - LOW TURNOVER OSTEOPATHY [None]
  - MUSCLE TIGHTNESS [None]
  - MUSCLE SPASMS [None]
  - TENDONITIS [None]
  - SOFT TISSUE DISORDER [None]
  - FALL [None]
  - GAIT DISTURBANCE [None]
  - OSTEOPOROSIS [None]
  - POLYARTHRITIS [None]
  - ANAEMIA POSTOPERATIVE [None]
  - SYNOVIAL CYST [None]
  - CARPAL TUNNEL SYNDROME [None]
  - RADICULAR PAIN [None]
  - TENOSYNOVITIS [None]
  - SPINAL DISORDER [None]
